FAERS Safety Report 8845022 (Version 2)
Quarter: 2012Q4

REPORT INFORMATION
  Report Type: 
  Country: US (occurrence: US)
  Receive Date: 20121017
  Receipt Date: 20121105
  Transmission Date: 20130627
  Serious: Yes (Other)
  Sender: FDA-Public Use
  Company Number: US-PFIZER INC-2012253794

PATIENT
  Age: 58 Year
  Sex: Female
  Weight: 74.38 kg

DRUGS (11)
  1. LYRICA [Suspect]
     Indication: FIBROMYALGIA
     Dosage: 50 mg, 2x/day
     Route: 048
  2. CELEBREX [Suspect]
     Dosage: 200 mg, 2x/day
     Route: 048
  3. XANAX [Suspect]
     Dosage: 0.5 mg, (1-2 tablets) 1x/day
     Route: 048
  4. COLACE [Concomitant]
     Dosage: 100 mg, 2x/day
     Route: 048
  5. LOVASTATIN [Concomitant]
     Dosage: 10 mg, 1x/day
     Route: 048
  6. VOLTAREN [Concomitant]
     Dosage: 1 %, as needed
     Route: 061
  7. TYLENOL PM, EXTRA STRENGTH [Concomitant]
     Dosage: 25mg-500mg 4 tabs QHS
     Route: 048
  8. NEXIUM [Concomitant]
     Dosage: 40 mg, 2x/day
     Route: 048
  9. PATANOL [Concomitant]
     Dosage: 0.1 %, OPH as needed
     Dates: start: 20070101
  10. SYNTHROID [Concomitant]
     Dosage: 25 ug, QAM
     Route: 048
  11. TYLENOL W/CODEINE NO. 4 [Concomitant]
     Dosage: UNK
     Route: 048

REACTIONS (17)
  - Polyarthritis [Unknown]
  - Peptic ulcer [Unknown]
  - Weight decreased [Unknown]
  - Dyspnoea [Unknown]
  - Decreased appetite [Unknown]
  - Abdominal pain upper [Unknown]
  - Fatigue [Unknown]
  - Asthenia [Unknown]
  - Dry eye [Unknown]
  - Tinnitus [Unknown]
  - Nausea [Unknown]
  - Insomnia [Unknown]
  - Sleep disorder [Unknown]
  - Headache [Unknown]
  - Pain [Unknown]
  - Myalgia [Unknown]
  - Myositis [Unknown]
